FAERS Safety Report 19588662 (Version 3)
Quarter: 2021Q3

REPORT INFORMATION
  Report Type: Spontaneous
  Country: US (occurrence: US)
  Receive Date: 20210721
  Receipt Date: 20210729
  Transmission Date: 20211014
  Serious: Yes (Hospitalization)
  Sender: FDA-Public Use
  Company Number: US-ROCHE-2872832

PATIENT
  Sex: Female
  Weight: 106.69 kg

DRUGS (1)
  1. XOLAIR [Suspect]
     Active Substance: OMALIZUMAB
     Indication: CHRONIC SPONTANEOUS URTICARIA
     Dosage: VIALS.
     Route: 058
     Dates: start: 20210606, end: 20210714

REACTIONS (1)
  - Anaphylactic reaction [Unknown]
